FAERS Safety Report 5777561-3 (Version None)
Quarter: 2008Q2

REPORT INFORMATION
  Report Type: 
  Country: None (occurrence: None)
  Receive Date: 20080618
  Receipt Date: 20080603
  Transmission Date: 20081010
  Serious: Yes (Death, Life-Threatening, Hospitalization)
  Sender: FDA-Public Use
  Company Number: PT-ROCHE-568527

PATIENT
  Sex: Male

DRUGS (6)
  1. XELODA [Suspect]
     Indication: RECTAL NEOPLASM
     Route: 048
     Dates: start: 20080327, end: 20080407
  2. PREDNISOLONA [Concomitant]
     Route: 048
     Dates: start: 20080314, end: 20080409
  3. FLUCONAZOLE [Concomitant]
     Route: 048
     Dates: start: 20080314, end: 20080409
  4. CLARITHROMYCIN [Concomitant]
     Route: 048
     Dates: start: 20070314, end: 20080409
  5. FLUOROURACILO [Concomitant]
     Indication: RECTAL NEOPLASM
     Dosage: FORM: INTRAVENOUS UNSPECIFIED
     Route: 042
     Dates: start: 20071031, end: 20080111
  6. OXALIPLATIN [Concomitant]
     Indication: RECTAL NEOPLASM
     Dosage: FORM : INTRAVENOUS (UNSPECIFIED)
     Route: 042
     Dates: start: 20071031, end: 20080211

REACTIONS (8)
  - ASTHENIA [None]
  - ATRIAL FIBRILLATION [None]
  - CARDIAC FAILURE [None]
  - HYPOTENSION [None]
  - LEUKOPENIA [None]
  - PYREXIA [None]
  - SEPSIS [None]
  - STOMATITIS [None]
